FAERS Safety Report 4917405-2 (Version None)
Quarter: 2006Q1

REPORT INFORMATION
  Report Type: 
  Country: None (occurrence: None)
  Receive Date: 20060221
  Receipt Date: 20050713
  Transmission Date: 20060701
  Serious: Yes (Disabling)
  Sender: FDA-Public Use
  Company Number: US-MERCK-0507USA01781

PATIENT
  Age: 37 Year
  Sex: Female

DRUGS (9)
  1. VIOXX [Suspect]
     Route: 048
  2. EFFEXOR [Concomitant]
     Route: 065
  3. WELLBUTRIN [Concomitant]
     Route: 065
  4. SOMA [Concomitant]
     Route: 065
  5. LORTAB [Concomitant]
     Route: 065
  6. SYNTHROID [Concomitant]
     Route: 065
  7. NEXIUM [Concomitant]
     Route: 065
  8. DEPAKOTE [Concomitant]
     Route: 065
  9. PROMETHAZINE [Concomitant]
     Route: 065

REACTIONS (31)
  - AMNESIA [None]
  - ASTHENIA [None]
  - BLINDNESS UNILATERAL [None]
  - BLOOD CHOLESTEROL INCREASED [None]
  - BLOOD TRIGLYCERIDES INCREASED [None]
  - CAROTID BRUIT [None]
  - CEREBROVASCULAR ACCIDENT [None]
  - CONFUSIONAL STATE [None]
  - CYST [None]
  - DEMYELINATION [None]
  - DEPRESSED LEVEL OF CONSCIOUSNESS [None]
  - DIZZINESS [None]
  - DYSAESTHESIA [None]
  - FALL [None]
  - FATIGUE [None]
  - FIBROMYALGIA [None]
  - HEADACHE [None]
  - HEMIPARESIS [None]
  - HYPOAESTHESIA [None]
  - INSOMNIA [None]
  - LETHARGY [None]
  - LOSS OF CONSCIOUSNESS [None]
  - MIGRAINE [None]
  - MULTIPLE SCLEROSIS [None]
  - MUSCULOSKELETAL DISORDER [None]
  - PANIC ATTACK [None]
  - PARAESTHESIA [None]
  - SYNCOPE [None]
  - TRANSIENT ISCHAEMIC ATTACK [None]
  - VISION BLURRED [None]
  - VISUAL FIELD DEFECT [None]
